FAERS Safety Report 10642944 (Version 1)
Quarter: 2014Q4

REPORT INFORMATION
  Report Type: Spontaneous
  Country: US (occurrence: None)
  Receive Date: 20141209
  Receipt Date: 20141209
  Transmission Date: 20150529
  Serious: Yes (Other)
  Sender: FDA-Public Use
  Company Number: None

PATIENT
  Age: 41 Year
  Sex: Female
  Weight: 68.04 kg

DRUGS (2)
  1. PROZAC [Suspect]
     Active Substance: FLUOXETINE HYDROCHLORIDE
     Indication: DEPRESSION
     Dosage: TAKEN BY MOUTH
     Route: 048
     Dates: end: 20141208
  2. PROZAC [Suspect]
     Active Substance: FLUOXETINE HYDROCHLORIDE
     Indication: OBSESSIVE-COMPULSIVE DISORDER
     Dosage: TAKEN BY MOUTH
     Route: 048
     Dates: end: 20141208

REACTIONS (9)
  - Weight decreased [None]
  - Gastrointestinal disorder [None]
  - Confusional state [None]
  - Depression [None]
  - Restlessness [None]
  - Decreased appetite [None]
  - Tremor [None]
  - Fear [None]
  - Fatigue [None]

NARRATIVE: CASE EVENT DATE: 20141205
